FAERS Safety Report 21393696 (Version 1)
Quarter: 2022Q3

REPORT INFORMATION
  Report Type: Spontaneous
  Country: CN (occurrence: None)
  Receive Date: 20220930
  Receipt Date: 20220930
  Transmission Date: 20221026
  Serious: Yes (Other)
  Sender: FDA-Public Use
  Company Number: CN-ROCHE-3186958

PATIENT
  Age: 49 Year
  Sex: Female
  Weight: 59 kg

DRUGS (9)
  1. DOCETAXEL [Suspect]
     Active Substance: DOCETAXEL
     Indication: Breast cancer
     Dosage: ON AN UNSPECIFIED DATE THE PATIENT STARTED TREATMENT WITH DOCETAXEL INJECTION.
     Route: 065
  2. DOCETAXEL [Suspect]
     Active Substance: DOCETAXEL
     Route: 041
     Dates: start: 20220903, end: 20220903
  3. PERJETA [Suspect]
     Active Substance: PERTUZUMAB
     Indication: Breast cancer
     Dosage: ON AN UNSPECIFIED DATE THE PATIENT STARTED TREATMENT WITH PERTUZUMAB
     Route: 065
  4. PERJETA [Suspect]
     Active Substance: PERTUZUMAB
     Dosage: ON AN UNSPECIFIED DATE THE PATIENT STARTED TREATMENT WITH PERTUZUMAB.
     Route: 041
     Dates: start: 20220903, end: 20220903
  5. HERCEPTIN [Suspect]
     Active Substance: TRASTUZUMAB
     Indication: Breast cancer
     Dosage: ON AN UNSPECIFIED DATE THE PATIENT STARTED TREATMENT WITH TRASTUZUMAB.
     Route: 065
  6. HERCEPTIN [Suspect]
     Active Substance: TRASTUZUMAB
     Dosage: ON AN UNSPECIFIED DATE THE PATIENT STARTED TREATMENT WITH TRASTUZUMAB
     Route: 041
     Dates: start: 20220903, end: 20220903
  7. SODIUM CHLORIDE [Concomitant]
     Active Substance: SODIUM CHLORIDE
     Route: 041
     Dates: start: 20220903, end: 20220903
  8. SODIUM CHLORIDE [Concomitant]
     Active Substance: SODIUM CHLORIDE
     Route: 041
     Dates: start: 20220903, end: 20220903
  9. PIRARUBICIN HYDROCHLORIDE [Concomitant]
     Active Substance: PIRARUBICIN HYDROCHLORIDE
     Indication: Breast cancer
     Dosage: ON AN UNSPECIFIED DATE THE PATIENT STARTED TREATMENT WITH PIRARUBICIN HYDROCHLORIDE FOR INJECTION

REACTIONS (2)
  - White blood cell count decreased [Recovering/Resolving]
  - Neutrophil count decreased [Recovering/Resolving]
